FAERS Safety Report 6194713-1 (Version None)
Quarter: 2009Q2

REPORT INFORMATION
  Report Type: 
  Country: None (occurrence: None)
  Receive Date: 20090519
  Receipt Date: 20090507
  Transmission Date: 20091009
  Serious: Yes (Other)
  Sender: FDA-Public Use
  Company Number: GR-PFIZER INC-2009210554

PATIENT

DRUGS (1)
  1. AZITHROMYCIN [Suspect]
     Route: 042
     Dates: start: 20090501, end: 20090501

REACTIONS (2)
  - BRONCHOSPASM [None]
  - DRUG HYPERSENSITIVITY [None]
